FAERS Safety Report 6936303-6 (Version None)
Quarter: 2010Q3

REPORT INFORMATION
  Report Type: 
  Country: None (occurrence: None)
  Receive Date: 20100823
  Receipt Date: 20100809
  Transmission Date: 20110219
  Serious: No
  Sender: FDA-Public Use
  Company Number: US-B.I. PHARMACEUTICALS,INC./RIDGEFIELD-2010-BP-09046BP

PATIENT
  Sex: Female

DRUGS (4)
  1. SPIRIVA [Suspect]
     Indication: CHRONIC OBSTRUCTIVE PULMONARY DISEASE
     Dosage: 18 MCG
     Route: 055
     Dates: start: 20100806, end: 20100806
  2. AVISTA [Concomitant]
     Indication: OSTEOPOROSIS
  3. CALCITRIOL [Concomitant]
     Indication: OSTEOPOROSIS
  4. VITAMIN B-12 [Concomitant]
     Indication: HEPATIC CIRRHOSIS

REACTIONS (2)
  - ABDOMINAL PAIN [None]
  - CONDITION AGGRAVATED [None]
